FAERS Safety Report 7159882-5 (Version None)
Quarter: 2010Q4

REPORT INFORMATION
  Report Type: 
  Country: None (occurrence: None)
  Receive Date: 20101214
  Receipt Date: 20101206
  Transmission Date: 20110411
  Serious: Yes (Other)
  Sender: FDA-Public Use
  Company Number: US-ROCHE-747117

PATIENT
  Age: 45 Year
  Sex: Female
  Weight: 59 kg

DRUGS (2)
  1. KLONOPIN [Suspect]
     Indication: ANXIETY
     Route: 048
     Dates: start: 20000101
  2. KLONOPIN [Suspect]
     Route: 048

REACTIONS (8)
  - ALOPECIA [None]
  - AMNESIA [None]
  - DRUG DEPENDENCE [None]
  - DRUG DOSE OMISSION [None]
  - HEART RATE INCREASED [None]
  - MEDICATION ERROR [None]
  - MULTIPLE SCLEROSIS [None]
  - MUSCLE TWITCHING [None]
